FAERS Safety Report 7946991-3 (Version None)
Quarter: 2011Q4

REPORT INFORMATION
  Report Type: 
  Country: None (occurrence: None)
  Receive Date: 20111129
  Receipt Date: 20111123
  Transmission Date: 20120403
  Serious: Yes (Other)
  Sender: FDA-Public Use
  Company Number: US-PFIZER INC-2011196599

PATIENT
  Sex: Female
  Weight: 87.982 kg

DRUGS (8)
  1. ABILIFY [Suspect]
     Indication: DEPRESSION
     Dosage: 5 MG, DAILY
     Route: 048
  2. KLONOPIN [Concomitant]
     Indication: FIBROMYALGIA
  3. EFFEXOR XR [Suspect]
     Indication: DEPRESSION
     Dosage: 150 MG, 2X/DAY
     Route: 048
     Dates: start: 20060101, end: 20110816
  4. TRAZODONE [Concomitant]
     Indication: SLEEP DISORDER
     Dosage: TWO TABLETS OF 50 MG DAILY
     Route: 048
  5. KLONOPIN [Concomitant]
     Indication: RESTLESS LEGS SYNDROME
     Dosage: ONE TABLET OF 2MG IN THE MORNING AND TWO TABLETS OF 2MG AT NIGHT
     Route: 048
  6. OXYCONTIN [Concomitant]
     Indication: PAIN
     Dosage: 20 MG, 2X/DAY
     Route: 048
  7. PRAVASTATIN [Concomitant]
     Indication: BLOOD CHOLESTEROL ABNORMAL
     Dosage: 20 MG, DAILY
     Route: 048
  8. BENAZEPRIL HYDROCHLORIDE/HYDROCHLOROTHIAZIDE [Concomitant]
     Indication: HYPERTENSION
     Dosage: 20/12.5 MG, DAILY
     Route: 048

REACTIONS (4)
  - FALL [None]
  - DIABETES MELLITUS [None]
  - ATAXIA [None]
  - WITHDRAWAL SYNDROME [None]
